FAERS Safety Report 5083768-3 (Version None)
Quarter: 2006Q3

REPORT INFORMATION
  Report Type: 
  Country: None (occurrence: None)
  Receive Date: 20060818
  Receipt Date: 20060314
  Transmission Date: 20061208
  Serious: Yes (Hospitalization)
  Sender: FDA-Public Use
  Company Number: CA-ABBOTT-06P-028-0327863-00

PATIENT
  Sex: Female

DRUGS (9)
  1. EPIVAL TABLETS [Suspect]
     Indication: EPILEPSY
     Route: 048
  2. EPIVAL TABLETS [Suspect]
     Route: 048
     Dates: start: 20060226
  3. LEVETIRACETAM [Suspect]
     Indication: EPILEPSY
     Route: 048
     Dates: start: 20051206, end: 20060224
  4. LEVETIRACETAM [Suspect]
     Route: 048
     Dates: start: 20051105, end: 20051205
  5. LEVETIRACETAM [Suspect]
     Route: 048
     Dates: start: 20060301
  6. CARBAMAZEPINE [Suspect]
     Indication: EPILEPSY
     Route: 048
  7. CARBAMAZEPINE [Suspect]
     Indication: OVERDOSE
     Route: 048
     Dates: start: 20060223, end: 20060223
  8. CARBAMAZEPINE [Suspect]
     Indication: SUICIDE ATTEMPT
  9. PHENYTOIN SODIUM [Suspect]
     Indication: EPILEPSY
     Route: 042
     Dates: start: 20060224, end: 20060226

REACTIONS (5)
  - APLASTIC ANAEMIA [None]
  - INTENTIONAL OVERDOSE [None]
  - LOSS OF CONSCIOUSNESS [None]
  - SUICIDE ATTEMPT [None]
  - THROMBOCYTOPENIA [None]
